FAERS Safety Report 26147183 (Version 1)
Quarter: 2025Q4

REPORT INFORMATION
  Report Type: Spontaneous
  Country: CL (occurrence: CL)
  Receive Date: 20251211
  Receipt Date: 20251211
  Transmission Date: 20260118
  Serious: Yes (Other)
  Sender: ROCHE
  Company Number: CL-ROCHE-10000452502

PATIENT

DRUGS (2)
  1. TECENTRIQ [Suspect]
     Active Substance: ATEZOLIZUMAB
     Indication: Hepatic cancer
     Dosage: DOSE AND FREQUENCY WERE NOT REPORTED?8 CYCLES RECEIVED
  2. AVASTIN [Suspect]
     Active Substance: BEVACIZUMAB
     Indication: Hepatic cancer
     Dosage: DOSE AND FREQUENCY WERE NOT REPORTED?8 CYCLES RECEIVED

REACTIONS (1)
  - Disease progression [Unknown]
